FAERS Safety Report 4678556-3 (Version None)
Quarter: 2005Q2

REPORT INFORMATION
  Report Type: 
  Country: None (occurrence: None)
  Receive Date: 20050527
  Receipt Date: 20050518
  Transmission Date: 20051028
  Serious: Yes (Hospitalization)
  Sender: FDA-Public Use
  Company Number: DE-2005-008115

PATIENT
  Sex: Female

DRUGS (1)
  1. ULTRAVIST 150 [Suspect]
     Dosage: 1 DOSE, PERINEURAL
     Route: 053

REACTIONS (2)
  - MYOCLONUS [None]
  - PROCEDURAL COMPLICATION [None]
